FAERS Safety Report 4956332-1 (Version None)
Quarter: 2006Q1

REPORT INFORMATION
  Report Type: 
  Country: None (occurrence: None)
  Receive Date: 20060323
  Receipt Date: 20060312
  Transmission Date: 20060701
  Serious: Yes (Other)
  Sender: FDA-Public Use
  Company Number: GB200603002753

PATIENT
  Age: 57 Year
  Sex: Female

DRUGS (1)
  1. XIGRIS [Suspect]
     Dosage: INTRAVENOUS
     Route: 042
     Dates: start: 20060312, end: 20060312

REACTIONS (2)
  - DISEASE PROGRESSION [None]
  - SEPSIS [None]
